FAERS Safety Report 15345932 (Version 1)
Quarter: 2018Q3

REPORT INFORMATION
  Report Type: Spontaneous
  Country: FI (occurrence: FI)
  Receive Date: 20180904
  Receipt Date: 20180904
  Transmission Date: 20181010
  Serious: Yes (Hospitalization, Other)
  Sender: FDA-Public Use
  Company Number: FI-ORION CORPORATION ORION PHARMA-18_00004331

PATIENT
  Age: 17 Year

DRUGS (16)
  1. ETANERCEPT [Suspect]
     Active Substance: ETANERCEPT
     Indication: PRODUCT USED FOR UNKNOWN INDICATION
     Route: 058
     Dates: start: 1999
  2. RISPERDAL [Suspect]
     Active Substance: RISPERIDONE
     Indication: PRODUCT USED FOR UNKNOWN INDICATION
     Route: 065
     Dates: end: 200801
  3. METHOTREXATE (TRADE NAME UNKNOWN) [Suspect]
     Active Substance: METHOTREXATE
     Indication: PRODUCT USED FOR UNKNOWN INDICATION
     Route: 048
     Dates: start: 200704, end: 2007
  4. METHOTREXATE (TRADE NAME UNKNOWN) [Suspect]
     Active Substance: METHOTREXATE
     Route: 065
     Dates: start: 200903
  5. ETANERCEPT [Suspect]
     Active Substance: ETANERCEPT
     Route: 058
     Dates: end: 200503
  6. ETANERCEPT [Suspect]
     Active Substance: ETANERCEPT
     Route: 058
     Dates: start: 200505
  7. ETANERCEPT [Suspect]
     Active Substance: ETANERCEPT
     Route: 058
     Dates: start: 2006, end: 200703
  8. METHOTREXATE (TRADE NAME UNKNOWN) [Suspect]
     Active Substance: METHOTREXATE
     Dosage: 10?12.5 MG/WEEK
     Route: 065
     Dates: start: 200804
  9. HUMIRA [Suspect]
     Active Substance: ADALIMUMAB
     Route: 058
     Dates: start: 201001
  10. ETANERCEPT [Suspect]
     Active Substance: ETANERCEPT
     Route: 058
     Dates: start: 200703, end: 200706
  11. CYCLOSPORIN A [Concomitant]
     Active Substance: CYCLOSPORINE
     Indication: PRODUCT USED FOR UNKNOWN INDICATION
     Dates: start: 201105, end: 2013
  12. HUMIRA [Suspect]
     Active Substance: ADALIMUMAB
     Indication: PRODUCT USED FOR UNKNOWN INDICATION
     Route: 058
     Dates: start: 200706, end: 2007
  13. RISPERDAL [Suspect]
     Active Substance: RISPERIDONE
     Route: 065
     Dates: start: 200801
  14. METHOTREXATE (TRADE NAME UNKNOWN) [Suspect]
     Active Substance: METHOTREXATE
     Route: 030
  15. HUMIRA [Suspect]
     Active Substance: ADALIMUMAB
     Route: 058
     Dates: start: 200903, end: 200912
  16. HUMIRA [Suspect]
     Active Substance: ADALIMUMAB
     Route: 058
     Dates: start: 2017

REACTIONS (18)
  - Tendonitis [Unknown]
  - Cataract [Unknown]
  - Psychotic disorder [Unknown]
  - Upper respiratory tract infection [Unknown]
  - Iritis [Not Recovered/Not Resolved]
  - Psychiatric symptom [Unknown]
  - Lethargy [Unknown]
  - Tonsillitis [Unknown]
  - Ileal ulcer [Unknown]
  - Intraocular pressure increased [Unknown]
  - Infection [Unknown]
  - Arthritis [Recovered/Resolved]
  - H1N1 influenza [Unknown]
  - Anterior chamber cell [Unknown]
  - Fatigue [Unknown]
  - Alanine aminotransferase abnormal [Recovered/Resolved]
  - Influenza [Recovered/Resolved]
  - Gambling disorder [Unknown]

NARRATIVE: CASE EVENT DATE: 20070101
